FAERS Safety Report 8430384 (Version 2)
Quarter: 2012Q4

REPORT INFORMATION
  Report Type: 
  Country: US (occurrence: US)
  Receive Date: 20120228
  Receipt Date: 20121217
  Transmission Date: 20130627
  Serious: Yes (Hospitalization)
  Sender: FDA-Public Use
  Company Number: US-BAYER-2012-018391

PATIENT
  Age: 18 Year
  Sex: Female

DRUGS (15)
  1. YASMIN [Suspect]
     Indication: BIRTH CONTROL
     Dosage: UNK
     Dates: start: 200606, end: 200612
  2. PROTONIX [Concomitant]
     Dosage: 40 mg, daily
     Route: 048
  3. NEXIUM [Concomitant]
     Route: 042
  4. ZOFRAN [Concomitant]
     Route: 042
  5. CEPHALEXIN [Concomitant]
     Dosage: 500 mg, UNK
     Route: 048
  6. LORTAB [Concomitant]
     Route: 048
  7. NAPROXEN [Concomitant]
     Dosage: 375 mg, UNK
     Route: 048
     Dates: start: 20060510
  8. REGLAN [Concomitant]
     Dosage: 10 mg,qid, prn
     Route: 048
     Dates: start: 20060530
  9. CIPRO [Concomitant]
     Dosage: 500 mg, BID
     Route: 048
     Dates: start: 20060617
  10. CARAFATE [Concomitant]
     Dosage: 1 g, UNK
     Route: 048
     Dates: start: 20060625
  11. COMPAZINE [Concomitant]
     Dosage: 10 mg, UNK
     Route: 048
     Dates: start: 20060625
  12. DARVOCET [Concomitant]
     Indication: PAIN
     Dosage: N100 every four hours prn
     Route: 048
     Dates: start: 20060617, end: 20060702
  13. DEMEROL [Concomitant]
     Dosage: 50 mg, UNK
     Route: 048
     Dates: start: 20060705
  14. PROMETHAZINE [Concomitant]
     Dosage: 25 mg, UNK
     Route: 048
     Dates: start: 20060718
  15. PAXIL [Concomitant]
     Dosage: 20 mg, daily
     Route: 048
     Dates: start: 20060614, end: 20060724

REACTIONS (3)
  - Cholecystectomy [None]
  - Biliary dyskinesia [None]
  - Abdominal pain [None]
